FAERS Safety Report 6624241-8 (Version None)
Quarter: 2010Q1

REPORT INFORMATION
  Report Type: 
  Country: None (occurrence: None)
  Receive Date: 20100310
  Receipt Date: 20091102
  Transmission Date: 20100710
  Serious: No
  Sender: FDA-Public Use
  Company Number: US-BIOGENIDEC-2009BI035485

PATIENT
  Age: 33 Year
  Sex: Female

DRUGS (3)
  1. AVONEX [Suspect]
     Indication: MULTIPLE SCLEROSIS
     Route: 030
     Dates: start: 20050615, end: 20060510
  2. AVONEX [Suspect]
     Route: 030
     Dates: start: 20060712, end: 20080609
  3. AVONEX [Suspect]
     Route: 030
     Dates: start: 20081130

REACTIONS (3)
  - ARTHRALGIA [None]
  - DEPRESSION [None]
  - MEMORY IMPAIRMENT [None]
